FAERS Safety Report 13380356 (Version 2)
Quarter: 2017Q2

REPORT INFORMATION
  Report Type: Other
  Country: CA (occurrence: CA)
  Receive Date: 20170329
  Receipt Date: 20170504
  Transmission Date: 20170830
  Serious: Yes (Other)
  Sender: FDA-Public Use
  Company Number: CA-APOTEX-2017AP008650

PATIENT
  Age: 64 Year
  Sex: Female

DRUGS (2)
  1. ABRAXANE [Concomitant]
     Active Substance: PACLITAXEL
     Indication: PRODUCT USED FOR UNKNOWN INDICATION
     Dosage: UNK
     Route: 065
  2. APO-LETROZOLE [Suspect]
     Active Substance: LETROZOLE
     Indication: BREAST CANCER
     Dosage: UNK
     Route: 048

REACTIONS (3)
  - Drug ineffective [Unknown]
  - Malignant neoplasm progression [Unknown]
  - Breast cancer [Unknown]
